FAERS Safety Report 21258048 (Version 4)
Quarter: 2022Q3

REPORT INFORMATION
  Report Type: Spontaneous
  Country: US (occurrence: US)
  Receive Date: 20220826
  Receipt Date: 20220921
  Transmission Date: 20221027
  Serious: No
  Sender: FDA-Public Use
  Company Number: US-NOVARTISTESTPH-NVSC2022US190989

PATIENT
  Age: 58 Year
  Sex: Female

DRUGS (2)
  1. COMBIPATCH [Suspect]
     Active Substance: ESTRADIOL\NORETHINDRONE ACETATE
     Indication: Hot flush
     Dosage: UNK (DOSE: 0.05/0.14 MG)
     Route: 062
     Dates: start: 202208
  2. COMBIPATCH [Suspect]
     Active Substance: ESTRADIOL\NORETHINDRONE ACETATE
     Dosage: UNK, (ON ABDOMEN)
     Route: 062
     Dates: start: 2020, end: 20220814

REACTIONS (4)
  - Vaginal haemorrhage [Unknown]
  - Application site pruritus [Unknown]
  - Application site erythema [Unknown]
  - Therapeutic product ineffective [Recovered/Resolved]

NARRATIVE: CASE EVENT DATE: 20220801
